FAERS Safety Report 9846577 (Version 1)
Quarter: 2014Q1

REPORT INFORMATION
  Report Type: Spontaneous
  Country: US (occurrence: US)
  Receive Date: 20140127
  Receipt Date: 20140127
  Transmission Date: 20141002
  Serious: Yes (Other)
  Sender: FDA-Public Use
  Company Number: US-GLAXOSMITHKLINE-A1057264A

PATIENT
  Age: 61 Year
  Sex: Male

DRUGS (5)
  1. ADVAIR HFA [Suspect]
     Indication: CHRONIC OBSTRUCTIVE PULMONARY DISEASE
     Route: 055
  2. ADVAIR HFA [Suspect]
     Indication: CHRONIC OBSTRUCTIVE PULMONARY DISEASE
     Route: 055
  3. VENTOLIN [Suspect]
     Indication: DYSPNOEA
     Route: 055
  4. SINGULAIR [Concomitant]
  5. ANTIVERT [Concomitant]

REACTIONS (7)
  - Cerebrovascular accident [Unknown]
  - Pneumonia [Unknown]
  - Deafness [Not Recovered/Not Resolved]
  - Cough [Unknown]
  - Amnesia [Not Recovered/Not Resolved]
  - Balance disorder [Not Recovered/Not Resolved]
  - Surgery [Unknown]
